FAERS Safety Report 18308367 (Version 2)
Quarter: 2020Q4

REPORT INFORMATION
  Report Type: Report from Study
  Country: BE (occurrence: GB)
  Receive Date: 20200924
  Receipt Date: 20201007
  Transmission Date: 20210113
  Serious: Yes (Hospitalization)
  Sender: FDA-Public Use
  Company Number: BE-EXELIXIS-XL18420032885

PATIENT
  Age: 54 Year
  Sex: Female
  Weight: 65.2 kg

DRUGS (4)
  1. DOXORUBICIN [Concomitant]
     Active Substance: DOXORUBICIN
     Dosage: 110 MG
     Route: 042
     Dates: start: 20200330, end: 20200713
  2. XL184 [Suspect]
     Active Substance: CABOZANTINIB
     Dosage: 60 MG, QD
     Route: 048
     Dates: start: 20200921
  3. XL184 [Suspect]
     Active Substance: CABOZANTINIB
     Indication: SARCOMA UTERUS
     Dosage: 60 MG, QD
     Route: 048
     Dates: start: 20200824, end: 20200911
  4. IFOSFAMIDE. [Concomitant]
     Active Substance: IFOSFAMIDE
     Dosage: UNK

REACTIONS (2)
  - Troponin increased [Recovered/Resolved]
  - Chest discomfort [Recovered/Resolved]

NARRATIVE: CASE EVENT DATE: 20200911
